FAERS Safety Report 5393950-3 (Version None)
Quarter: 2007Q3

REPORT INFORMATION
  Report Type: 
  Country: None (occurrence: None)
  Receive Date: 20070723
  Receipt Date: 20061208
  Transmission Date: 20080115
  Serious: Yes (Other)
  Sender: FDA-Public Use
  Company Number: A0628990A

PATIENT
  Age: 50 Year
  Sex: Female
  Weight: 114 kg

DRUGS (2)
  1. AVANDIA [Suspect]
     Route: 048
     Dates: end: 20060923
  2. NO CONCURRENT MEDICATION [Concomitant]

REACTIONS (1)
  - ANAEMIA [None]
